FAERS Safety Report 5273633-0 (Version None)
Quarter: 2007Q1

REPORT INFORMATION
  Report Type: 
  Country: None (occurrence: None)
  Receive Date: 20070323
  Receipt Date: 20070312
  Transmission Date: 20070707
  Serious: Yes (Other)
  Sender: FDA-Public Use
  Company Number: US-SANOFI-SYNTHELABO-A03200702026

PATIENT
  Sex: Male

DRUGS (4)
  1. AMBIEN [Suspect]
     Indication: INSOMNIA
     Dosage: UPWARDS OF 20 TABLETS OR MORE
     Route: 048
     Dates: start: 20010101
  2. AMBIEN [Suspect]
     Route: 048
     Dates: end: 20060301
  3. IMITREX [Concomitant]
     Dosage: UNK
     Route: 065
  4. PREVACID [Concomitant]
     Dosage: UNK
     Route: 048

REACTIONS (16)
  - ABNORMAL BEHAVIOUR [None]
  - ACCIDENTAL OVERDOSE [None]
  - AMNESIA [None]
  - BINGE EATING [None]
  - CHOKING [None]
  - CONFUSIONAL STATE [None]
  - FALL [None]
  - FOOT FRACTURE [None]
  - GASTRIC DISORDER [None]
  - ILL-DEFINED DISORDER [None]
  - IMPAIRED DRIVING ABILITY [None]
  - INJURY [None]
  - ROAD TRAFFIC ACCIDENT [None]
  - SLEEP WALKING [None]
  - SOMNOLENCE [None]
  - WEIGHT INCREASED [None]
